FAERS Safety Report 9473169 (Version 2)
Quarter: 2013Q3

REPORT INFORMATION
  Report Type: Spontaneous
  Country: US (occurrence: US)
  Receive Date: 20130823
  Receipt Date: 20130823
  Transmission Date: 20140515
  Serious: Yes (Hospitalization)
  Sender: FDA-Public Use
  Company Number: US-BRISTOL-MYERS SQUIBB COMPANY-18712109

PATIENT
  Age: 80 Year
  Sex: Male
  Weight: 90.7 kg

DRUGS (12)
  1. SPRYCEL (CML) TABS 100 MG [Suspect]
     Indication: HEPATOCELLULAR CARCINOMA
     Dosage: RECEIVED UNTIL 16APR2013
     Route: 048
     Dates: start: 20130325
  2. SPRYCEL (CML) TABS 100 MG [Suspect]
     Indication: CHRONIC MYELOID LEUKAEMIA
     Dosage: RECEIVED UNTIL 16APR2013
     Route: 048
     Dates: start: 20130325
  3. PLAVIX [Suspect]
     Indication: STENT PLACEMENT
  4. TAMSULOSIN [Concomitant]
  5. HYDRALAZINE [Concomitant]
  6. PROTONIX [Concomitant]
  7. LIPITOR [Concomitant]
  8. CAPTOPRIL [Concomitant]
  9. TOPROL XL [Concomitant]
  10. TIOTROPIUM BROMIDE [Concomitant]
     Indication: DYSPNOEA
     Dosage: 1 DF : ONE CAPSULE AT NIGHT FOR SOB
  11. NOVOLOG [Concomitant]
     Dosage: 1 DF : 20 UNITS.
  12. LANTUS [Concomitant]
     Dosage: 1 DF : 40 UNITS AT NIGHT.

REACTIONS (3)
  - Myocardial infarction [Unknown]
  - Back pain [Unknown]
  - Nausea [Unknown]
